FAERS Safety Report 8558777-X (Version None)
Quarter: 2012Q3

REPORT INFORMATION
  Report Type: 
  Country: None (occurrence: None)
  Receive Date: 20120801
  Receipt Date: 20120719
  Transmission Date: 20120928
  Serious: No
  Sender: FDA-Public Use
  Company Number: GB-009507513-2012SP036741

PATIENT

DRUGS (13)
  1. AMOXICILLIN [Concomitant]
     Indication: ANTI-INFECTIVE THERAPY
     Dosage: UNK UNK, UNKNOWN
     Route: 048
     Dates: start: 20101025
  2. DOXORUBICIN HYDROCHLORIDE [Suspect]
     Dosage: 64 MG, UNKNOWN
     Route: 042
     Dates: start: 20101018, end: 20101109
  3. ENOXAPARIN SODIUM [Concomitant]
     Indication: PROPHYLAXIS
     Dosage: UNK UNK, QD
     Route: 058
     Dates: start: 20100911
  4. BEBETINA [Concomitant]
     Indication: ANALGESIC THERAPY
     Route: 048
     Dates: start: 20101024
  5. MK-0805 [Concomitant]
     Route: 048
     Dates: start: 20101111
  6. DEXAMETHASONE [Suspect]
     Indication: MULTIPLE MYELOMA
     Dosage: 160 MG, UNK
     Route: 048
     Dates: start: 20100927, end: 20101017
  7. DEXAMETHASONE [Suspect]
     Dosage: 160 MG, UNK
     Route: 048
     Dates: start: 20101018, end: 20101109
  8. GABAPENTIN [Concomitant]
     Indication: ANALGESIC THERAPY
     Dosage: UNK UNK, QD
     Route: 048
     Dates: start: 20101024
  9. VELCADE [Suspect]
     Indication: MULTIPLE MYELOMA
     Dosage: 2.4 MG/M2, UNKNOWN
     Route: 042
     Dates: start: 20100927
  10. ACETAMINOPHEN [Concomitant]
     Indication: ANALGESIC THERAPY
     Dosage: UNK
     Route: 048
     Dates: start: 20101025
  11. DOXORUBICIN HYDROCHLORIDE [Suspect]
     Indication: MULTIPLE MYELOMA
     Dosage: 64 MG, UNKNOWN
     Route: 042
     Dates: start: 20100927, end: 20101017
  12. VELCADE [Suspect]
     Dosage: 2.4 MG/M2, UNKNOWN
     Route: 042
     Dates: start: 20101018, end: 20101109
  13. MK-0805 [Concomitant]
     Indication: POLYURIA
     Dosage: UNK UNK, UNKNOWN
     Route: 042
     Dates: start: 20101111, end: 20101112

REACTIONS (1)
  - NO ADVERSE EVENT [None]
